FAERS Safety Report 4455256-6 (Version None)
Quarter: 2004Q3

REPORT INFORMATION
  Report Type: 
  Country: None (occurrence: None)
  Receive Date: 20040921
  Receipt Date: 20040913
  Transmission Date: 20050211
  Serious: Yes (Hospitalization)
  Sender: FDA-Public Use
  Company Number: FR-MERCK-0409FRA00054

PATIENT
  Age: 89 Year
  Sex: Female

DRUGS (7)
  1. DIGOXIN [Concomitant]
     Indication: MITRAL VALVE STENOSIS
     Route: 048
  2. DIGOXIN [Concomitant]
     Indication: MITRAL VALVE INCOMPETENCE
     Route: 048
  3. FLUINDIONE [Suspect]
     Indication: THROMBOSIS PROPHYLAXIS
     Route: 048
     Dates: end: 20040601
  4. FLUINDIONE [Suspect]
     Route: 048
     Dates: start: 20040601
  5. RAMIPRIL [Concomitant]
     Indication: MITRAL VALVE STENOSIS
     Route: 048
  6. RAMIPRIL [Concomitant]
     Indication: MITRAL VALVE INCOMPETENCE
     Route: 048
  7. VIOXX [Suspect]
     Indication: RHEUMATOID ARTHRITIS
     Route: 048
     Dates: start: 20040501, end: 20040601

REACTIONS (4)
  - DRUG INTERACTION [None]
  - HAEMATOMA [None]
  - RECTAL HAEMORRHAGE [None]
  - TRANSIENT ISCHAEMIC ATTACK [None]
